FAERS Safety Report 17443682 (Version 1)
Quarter: 2020Q1

REPORT INFORMATION
  Report Type: Spontaneous
  Country: US (occurrence: US)
  Receive Date: 20200220
  Receipt Date: 20200220
  Transmission Date: 20200409
  Serious: Yes (Hospitalization)
  Sender: FDA-Public Use
  Company Number: None

PATIENT
  Age: 33 Year
  Sex: Female
  Weight: 80.74 kg

DRUGS (8)
  1. BUPROPION 150MG DAILY [Concomitant]
  2. LO-ESTRIN 1 TAB DAILY [Concomitant]
  3. POLYETHYLENE GLYCOL 17GM MWF [Concomitant]
  4. LEVETIRACETAM 2000MG BID [Concomitant]
  5. LAMOTRIGINE. [Suspect]
     Active Substance: LAMOTRIGINE
     Indication: SEIZURE
     Route: 048
     Dates: start: 20200102, end: 20200106
  6. VALPROIC ACID. [Suspect]
     Active Substance: VALPROIC ACID
     Indication: SEIZURE
     Route: 048
  7. HYDROCHLOROTHIAZIDE 12.5MG DAILY [Concomitant]
  8. LACTULOSE 30GM BID [Concomitant]

REACTIONS (6)
  - Vomiting [None]
  - Gait disturbance [None]
  - Tremor [None]
  - Crying [None]
  - Decreased appetite [None]
  - Ammonia increased [None]

NARRATIVE: CASE EVENT DATE: 20200106
